FAERS Safety Report 9206115 (Version 1)
Quarter: 2013Q2

REPORT INFORMATION
  Report Type: Spontaneous
  Country: US (occurrence: None)
  Receive Date: 20130401
  Receipt Date: 20130401
  Transmission Date: 20140414
  Serious: Yes (Hospitalization)
  Sender: FDA-Public Use
  Company Number: 2013-0132

PATIENT
  Age: 72 Year
  Sex: Female
  Weight: 65 kg

DRUGS (12)
  1. CARFILZOMIB [Suspect]
     Indication: PLASMA CELL MYELOMA
     Dosage: DAYS 1, 2, 8, 9, 15, 16, FOR 3 WEEKS (DAYS 1, 2, 8, 9, 15, 16, FOR 3 WEEKS), INTRAVENOUS
     Route: 042
     Dates: start: 20130109, end: 20130214
  2. POMALIDOMIDE [Concomitant]
  3. DIOVAN [Concomitant]
  4. ZETIA [Concomitant]
  5. NAPROXEN [Concomitant]
  6. METFORMIN [Concomitant]
  7. OS-CAL [Concomitant]
  8. GLIMEPIRIDE [Concomitant]
  9. ALLOPURINOL [Concomitant]
  10. ACYCLOVIR [Concomitant]
  11. VERAPAMIL [Concomitant]
  12. ASPIRIN [Concomitant]

REACTIONS (10)
  - Haemoglobin decreased [None]
  - Pulmonary congestion [None]
  - Pulmonary oedema [None]
  - Dyspnoea exertional [None]
  - Cardiomyopathy [None]
  - Atrial fibrillation [None]
  - Pneumonitis [None]
  - Alveolitis allergic [None]
  - Plasma cell myeloma [None]
  - International normalised ratio increased [None]
